FAERS Safety Report 10171793 (Version 1)
Quarter: 2014Q2

REPORT INFORMATION
  Report Type: Spontaneous
  Country: US (occurrence: None)
  Receive Date: 20140512
  Receipt Date: 20140512
  Transmission Date: 20141212
  Serious: Yes (Hospitalization, Other)
  Sender: FDA-Public Use
  Company Number: 2014P1003642

PATIENT
  Age: 15 Year
  Sex: Male

DRUGS (2)
  1. ACTIMMUNE [Suspect]
     Indication: CHRONIC GRANULOMATOUS DISEASE
     Dosage: 0.2 UNK
     Route: 058
     Dates: start: 201404
  2. UNSPECIFIED ANTIBIOTIC [Concomitant]

REACTIONS (1)
  - Lymph gland infection [None]
